FAERS Safety Report 7952016-6 (Version None)
Quarter: 2011Q4

REPORT INFORMATION
  Report Type: 
  Country: None (occurrence: None)
  Receive Date: 20111201
  Receipt Date: 20111130
  Transmission Date: 20120403
  Serious: Yes (Other)
  Sender: FDA-Public Use
  Company Number: US-BRISTOL-MYERS SQUIBB COMPANY-16133738

PATIENT
  Sex: Male

DRUGS (3)
  1. KOMBIGLYZE XR [Suspect]
     Dates: start: 20110623
  2. METFORMIN HCL [Suspect]
  3. ZOCOR [Suspect]

REACTIONS (4)
  - STAPHYLOCOCCAL SKIN INFECTION [None]
  - NAUSEA [None]
  - PYREXIA [None]
  - HEPATIC ENZYME INCREASED [None]
